FAERS Safety Report 21170322 (Version 1)
Quarter: 2022Q3

REPORT INFORMATION
  Report Type: Spontaneous
  Country: CA (occurrence: CA)
  Receive Date: 20220804
  Receipt Date: 20220804
  Transmission Date: 20221026
  Serious: Yes (Other)
  Sender: FDA-Public Use
  Company Number: CA-BAXTER-2022BAX016521

PATIENT
  Sex: Female

DRUGS (33)
  1. CYCLOPHOSPHAMIDE [Suspect]
     Active Substance: CYCLOPHOSPHAMIDE
     Indication: Human epidermal growth factor receptor negative
     Dosage: UNK
     Route: 065
  2. CYCLOPHOSPHAMIDE [Suspect]
     Active Substance: CYCLOPHOSPHAMIDE
     Indication: Hormone receptor positive breast cancer
     Dosage: UNK (DOSAGE FORM: NOT SPECIFIED)
     Route: 065
  3. CYCLOPHOSPHAMIDE [Suspect]
     Active Substance: CYCLOPHOSPHAMIDE
     Indication: Breast cancer metastatic
  4. ABRAXANE [Suspect]
     Active Substance: PACLITAXEL
     Indication: Human epidermal growth factor receptor negative
     Dosage: UNK (ABRAXANE FOR INJECTABLE SUSPENSION)
     Route: 042
  5. ABRAXANE [Suspect]
     Active Substance: PACLITAXEL
     Indication: Hormone receptor positive breast cancer
     Dosage: UNK (ABRAXANE FOR INJECTABLE SUSPENSION - DOSAGE FORM: POWDER FOR SOLUTION INTRAVENOUS)
     Route: 042
  6. ABRAXANE [Suspect]
     Active Substance: PACLITAXEL
     Indication: Breast cancer metastatic
  7. EXEMESTANE [Suspect]
     Active Substance: EXEMESTANE
     Indication: Human epidermal growth factor receptor negative
     Dosage: UNK
     Route: 065
  8. EXEMESTANE [Suspect]
     Active Substance: EXEMESTANE
     Indication: Hormone receptor positive breast cancer
  9. EXEMESTANE [Suspect]
     Active Substance: EXEMESTANE
     Indication: Breast cancer metastatic
  10. FLUOROURACIL [Suspect]
     Active Substance: FLUOROURACIL
     Indication: Human epidermal growth factor receptor negative
     Dosage: UNK
     Route: 065
  11. FLUOROURACIL [Suspect]
     Active Substance: FLUOROURACIL
     Indication: Hormone receptor positive breast cancer
     Dosage: UNK (DOSAGE FORM: NOT SPECIFIED)
     Route: 065
  12. FLUOROURACIL [Suspect]
     Active Substance: FLUOROURACIL
     Indication: Breast cancer metastatic
  13. FULVESTRANT [Suspect]
     Active Substance: FULVESTRANT
     Indication: Human epidermal growth factor receptor negative
     Dosage: UNK
     Route: 030
  14. FULVESTRANT [Suspect]
     Active Substance: FULVESTRANT
     Indication: Hormone receptor positive breast cancer
  15. FULVESTRANT [Suspect]
     Active Substance: FULVESTRANT
     Indication: Breast cancer metastatic
  16. FULVESTRANT [Suspect]
     Active Substance: FULVESTRANT
     Indication: Human epidermal growth factor receptor negative
     Dosage: UNK
     Route: 030
  17. FULVESTRANT [Suspect]
     Active Substance: FULVESTRANT
     Indication: Hormone receptor positive breast cancer
  18. FULVESTRANT [Suspect]
     Active Substance: FULVESTRANT
     Indication: Breast cancer metastatic
  19. LETROZOLE [Suspect]
     Active Substance: LETROZOLE
     Indication: Human epidermal growth factor receptor negative
     Dosage: UNK
     Route: 065
  20. LETROZOLE [Suspect]
     Active Substance: LETROZOLE
     Indication: Hormone receptor positive breast cancer
  21. LETROZOLE [Suspect]
     Active Substance: LETROZOLE
     Indication: Breast cancer metastatic
  22. TAMOXIFEN [Suspect]
     Active Substance: TAMOXIFEN
     Indication: Human epidermal growth factor receptor negative
     Dosage: UNK
     Route: 048
  23. TAMOXIFEN [Suspect]
     Active Substance: TAMOXIFEN
     Indication: Hormone receptor positive breast cancer
  24. TAMOXIFEN [Suspect]
     Active Substance: TAMOXIFEN
     Indication: Breast cancer metastatic
  25. TAMOXIFEN [Suspect]
     Active Substance: TAMOXIFEN
     Indication: Human epidermal growth factor receptor negative
     Dosage: UNK
     Route: 048
  26. TAMOXIFEN [Suspect]
     Active Substance: TAMOXIFEN
     Indication: Hormone receptor positive breast cancer
  27. TAMOXIFEN [Suspect]
     Active Substance: TAMOXIFEN
     Indication: Breast cancer metastatic
  28. TAXOL [Suspect]
     Active Substance: PACLITAXEL
     Indication: Human epidermal growth factor receptor negative
     Dosage: UNK
     Route: 030
  29. TAXOL [Suspect]
     Active Substance: PACLITAXEL
     Indication: Hormone receptor positive breast cancer
     Dosage: UNK (DOSAGE FORM: SOLUTION INTRAVENOUS)
     Route: 030
  30. TAXOL [Suspect]
     Active Substance: PACLITAXEL
     Indication: Breast cancer metastatic
  31. XELODA [Suspect]
     Active Substance: CAPECITABINE
     Indication: Human epidermal growth factor receptor negative
     Dosage: UNK
     Route: 048
  32. XELODA [Suspect]
     Active Substance: CAPECITABINE
     Indication: Hormone receptor positive breast cancer
  33. XELODA [Suspect]
     Active Substance: CAPECITABINE
     Indication: Breast cancer metastatic

REACTIONS (1)
  - Metastasis [Unknown]
